FAERS Safety Report 6968290-9 (Version None)
Quarter: 2010Q3

REPORT INFORMATION
  Report Type: 
  Country: None (occurrence: None)
  Receive Date: 20100907
  Receipt Date: 20100824
  Transmission Date: 20110219
  Serious: Yes (Death, Other)
  Sender: FDA-Public Use
  Company Number: DE-ROCHE-719177

PATIENT
  Sex: Male
  Weight: 109 kg

DRUGS (15)
  1. BEVACIZUMAB [Suspect]
     Dosage: FOURTH CYCLE ON 28-JUL-2010
     Route: 042
     Dates: start: 20100527, end: 20100728
  2. PACLITAXEL [Suspect]
     Dosage: FOURTH CYCLE ON 28-JUL-2010
     Route: 042
     Dates: start: 20100528, end: 20100728
  3. CARBOPLATIN [Suspect]
     Dosage: FOURTH CYCLE ON 28-JUL-2010
     Route: 042
     Dates: start: 20100528, end: 20100728
  4. BISOPROLOL FUMARATE [Concomitant]
     Dosage: LONG TERM MEDICATION
     Route: 048
  5. ENALAPRIL [Concomitant]
     Dosage: LONG TERM MEDICATION
     Route: 048
  6. ASPIRIN [Concomitant]
     Dosage: LONG TERM MEDICATION
     Route: 048
  7. HCT [Concomitant]
     Dosage: LONG TERM MEDICATION
     Route: 048
  8. LASIX [Concomitant]
     Dosage: LONG TERM MEDICATION
     Route: 048
  9. OMEP [Concomitant]
     Dosage: LONG TERM MEDICATION
     Route: 048
  10. NIFEDIPINE [Concomitant]
     Dosage: LONG TERM MEDICATION
     Route: 048
  11. IBUPROFEN [Concomitant]
     Dosage: LONG TERM MEDICATION
     Route: 048
  12. NULYTELY [Concomitant]
     Dosage: LONG TERM MEDICATION
     Route: 048
  13. MST [Concomitant]
     Dosage: LONG TERM MEDICATION
     Route: 048
  14. CLEXANE [Concomitant]
     Indication: DEEP VEIN THROMBOSIS
     Route: 058
  15. LACTULOSE [Concomitant]
     Dosage: LONG TERM MEDICATION
     Route: 048

REACTIONS (3)
  - CARDIAC FAILURE [None]
  - PULMONARY EMBOLISM [None]
  - PULMONARY OEDEMA [None]
